FAERS Safety Report 19313454 (Version 2)
Quarter: 2022Q3

REPORT INFORMATION
  Report Type: Report from Study
  Country: ES (occurrence: ES)
  Receive Date: 20210527
  Receipt Date: 20220712
  Transmission Date: 20221027
  Serious: Yes (Other)
  Sender: FDA-Public Use
  Company Number: ES-SUN PHARMACEUTICAL INDUSTRIES LTD-2021R1-297955

PATIENT
  Age: 56 Year
  Sex: Male

DRUGS (2)
  1. MORPHINE [Suspect]
     Active Substance: MORPHINE
     Indication: Pain
     Dosage: UNK
     Route: 048
  2. MORPHINE [Suspect]
     Active Substance: MORPHINE
     Indication: Breakthrough pain

REACTIONS (1)
  - Drug dependence [Unknown]
